FAERS Safety Report 11450611 (Version 1)
Quarter: 2015Q3

REPORT INFORMATION
  Report Type: Spontaneous
  Country: US (occurrence: None)
  Receive Date: 20150902
  Receipt Date: 20150902
  Transmission Date: 20151125
  Serious: No
  Sender: FDA-Public Use
  Company Number: None

PATIENT
  Age: 72 Year
  Sex: Male

DRUGS (27)
  1. KLOR-CON [Concomitant]
     Active Substance: POTASSIUM CHLORIDE
  2. ZINC [Concomitant]
     Active Substance: ZINC\ZINC CHLORIDE
  3. GREEN TEA EXTRACT [Concomitant]
  4. COREG [Concomitant]
     Active Substance: CARVEDILOL
  5. PLAVIX [Concomitant]
     Active Substance: CLOPIDOGREL BISULFATE
  6. MAGNESIUM [Concomitant]
     Active Substance: MAGNESIUM
  7. FLAX OIL [Concomitant]
  8. OLIVE LEAF EXTRACT [Concomitant]
  9. FISH OIL [Concomitant]
     Active Substance: FISH OIL
  10. ALPHA LIPOIC ACID [Concomitant]
     Active Substance: .ALPHA.-LIPOIC ACID
  11. MILK THISTLE [Concomitant]
     Active Substance: MILK THISTLE
  12. PACEMAKER [Concomitant]
  13. OLIVE OIL [Concomitant]
     Active Substance: OLIVE OIL
  14. PYCNOGENOL [Concomitant]
     Active Substance: DIETARY SUPPLEMENT
  15. PROBIOTIC [Concomitant]
     Active Substance: PROBIOTICS NOS
  16. SPIRULINA [Concomitant]
     Active Substance: SPIRULINA
  17. L ARGININE [Concomitant]
     Active Substance: ARGININE
  18. L CITRULLINE [Concomitant]
     Active Substance: CITRULLINE
  19. SAW PALMETTO [Concomitant]
     Active Substance: SAW PALMETTO
  20. L CARNITINE [Concomitant]
     Active Substance: LEVOCARNITINE
  21. FLUOROURACIL 5% [Suspect]
     Active Substance: FLUOROURACIL
     Indication: SKIN CANCER
     Dosage: SKIN
     Route: 061
     Dates: start: 20150727, end: 20150730
  22. LISINOPRIL. [Concomitant]
     Active Substance: LISINOPRIL
  23. LASIX [Concomitant]
     Active Substance: FUROSEMIDE
  24. L GLUTAMINE [Concomitant]
     Active Substance: GLUTAMINE
  25. RED YEAST RICE [Concomitant]
     Active Substance: DIETARY SUPPLEMENT
  26. DIGOX [Concomitant]
     Active Substance: DIGOXIN
  27. KRILL OIL [Concomitant]
     Active Substance: DIETARY SUPPLEMENT

REACTIONS (9)
  - Burning sensation [None]
  - Dysgeusia [None]
  - Diarrhoea [None]
  - Local swelling [None]
  - Pruritus [None]
  - Jaw disorder [None]
  - Lip swelling [None]
  - Urticaria [None]
  - Swelling [None]

NARRATIVE: CASE EVENT DATE: 20150731
